FAERS Safety Report 6863074-4 (Version None)
Quarter: 2010Q3

REPORT INFORMATION
  Report Type: 
  Country: None (occurrence: None)
  Receive Date: 20100721
  Receipt Date: 20100709
  Transmission Date: 20110219
  Serious: Yes (Death, Hospitalization)
  Sender: FDA-Public Use
  Company Number: IL-JNJFOC-20100603572

PATIENT
  Age: 70 Year
  Sex: Female

DRUGS (25)
  1. LEVOFLOXACIN [Suspect]
     Indication: BACTERAEMIA
     Route: 065
  2. GLYBURIDE [Suspect]
     Indication: TYPE 2 DIABETES MELLITUS
     Route: 065
  3. AMITRIPTYLINE HYDROCHLORIDE [Suspect]
     Indication: DEPRESSION
     Route: 065
  4. METFORMIN HCL [Suspect]
     Indication: TYPE 2 DIABETES MELLITUS
     Route: 065
  5. CIPROFLOXACIN [Suspect]
     Indication: BACTERAEMIA
     Route: 065
  6. VERAPAMIL [Suspect]
     Indication: HYPERTENSION
     Route: 065
  7. ENALAPRIL MALEATE [Suspect]
     Indication: HYPERTENSION
     Route: 065
  8. ASPIRIN [Suspect]
     Indication: MYOCARDIAL ISCHAEMIA
     Route: 065
  9. THEOPHYLLINE [Suspect]
     Indication: BRONCHITIS CHRONIC
     Route: 065
  10. FUROSEMIDE [Suspect]
     Indication: HYPERTENSION
     Route: 065
  11. CITALOPRAM HYDROBROMIDE [Suspect]
     Indication: DEPRESSION
     Route: 065
  12. AMPICILLIN SODIUM [Suspect]
     Indication: BACTERAEMIA
     Route: 065
  13. PIPERACILLIN [Suspect]
     Indication: BACTERAEMIA
     Route: 065
  14. AMIKACIN [Suspect]
     Indication: BACTERAEMIA
     Route: 065
  15. HYDROCORTISONE [Suspect]
     Indication: TOXIC EPIDERMAL NECROLYSIS
     Route: 065
  16. CEFTRIAXONE SODIUM [Suspect]
     Indication: PNEUMONIA
     Route: 065
  17. GAMMA GLOB ANTIVAR [Suspect]
     Indication: PRODUCT USED FOR UNKNOWN INDICATION
     Route: 065
  18. OMEPRAZOLE [Suspect]
     Indication: PRODUCT USED FOR UNKNOWN INDICATION
     Route: 065
  19. VANCOMYCIN [Suspect]
     Indication: BACTERAEMIA
     Route: 065
  20. TAZOBACTAM [Suspect]
     Indication: PRODUCT USED FOR UNKNOWN INDICATION
     Route: 065
  21. SIMVASTATIN [Concomitant]
     Indication: HYPERLIPIDAEMIA
     Route: 065
  22. DORZOLAMIDE HYDROCHLORIDE [Concomitant]
     Route: 065
  23. LATANOPROST [Concomitant]
     Route: 047
  24. DEXTROSE [Concomitant]
     Route: 065
  25. MAGNESIUM SULFATE [Concomitant]
     Route: 065

REACTIONS (5)
  - ACUTE RESPIRATORY DISTRESS SYNDROME [None]
  - BACTERAEMIA [None]
  - HAEMORRHAGE INTRACRANIAL [None]
  - HYPOGLYCAEMIA [None]
  - TOXIC EPIDERMAL NECROLYSIS [None]
